FAERS Safety Report 6552377-9 (Version None)
Quarter: 2010Q1

REPORT INFORMATION
  Report Type: 
  Country: None (occurrence: None)
  Receive Date: 20100120
  Receipt Date: 20091231
  Transmission Date: 20100710
  Serious: Yes (Hospitalization, Other)
  Sender: FDA-Public Use
  Company Number: SRX_00018_2009

PATIENT
  Sex: Male
  Weight: 124.7392 kg

DRUGS (7)
  1. TESTOSTERONE [Suspect]
     Indication: BLOOD TESTOSTERONE DECREASED
     Dosage: SEE IMAGE
     Route: 030
     Dates: end: 20080301
  2. TESTOSTERONE [Suspect]
     Indication: BLOOD TESTOSTERONE DECREASED
     Dosage: SEE IMAGE
     Route: 030
     Dates: start: 20060101
  3. TESTOSTERONE [Suspect]
     Indication: BLOOD TESTOSTERONE DECREASED
     Dosage: SEE IMAGE
     Route: 030
     Dates: start: 20080301
  4. XANAX [Concomitant]
  5. NORCO [Concomitant]
  6. BACLOFEN [Concomitant]
  7. IBUPROFEN [Concomitant]

REACTIONS (9)
  - BLOOD TESTOSTERONE DECREASED [None]
  - BLOOD TESTOSTERONE INCREASED [None]
  - EJACULATION DISORDER [None]
  - ERECTILE DYSFUNCTION [None]
  - HAEMATOCRIT INCREASED [None]
  - HYPOGONADISM [None]
  - MOOD SWINGS [None]
  - PRODUCT CONTAMINATION [None]
  - PRODUCT QUALITY ISSUE [None]
